FAERS Safety Report 14179715 (Version 4)
Quarter: 2018Q1

REPORT INFORMATION
  Report Type: Report from Study
  Country: CA (occurrence: CA)
  Receive Date: 20171110
  Receipt Date: 20180122
  Transmission Date: 20180508
  Serious: Yes (Other)
  Sender: FDA-Public Use
  Company Number: CA-GILEAD-2017-0303123

PATIENT
  Age: 54 Year
  Sex: Male

DRUGS (4)
  1. LACTULOSE. [Concomitant]
     Active Substance: LACTULOSE
  2. RIBAVIRIN. [Suspect]
     Active Substance: RIBAVIRIN
     Indication: CHRONIC HEPATITIS C
     Dosage: 1000 MG, UNK
     Route: 048
     Dates: start: 20161019
  3. SOFOSBUVIR W/VELPATASVIR [Suspect]
     Active Substance: SOFOSBUVIR\VELPATASVIR
     Indication: CHRONIC HEPATITIS C
     Dosage: 1 DF, UNK
     Route: 048
     Dates: start: 20161019
  4. ZAXINE [Concomitant]
     Active Substance: RIFAXIMIN

REACTIONS (6)
  - Treatment failure [Unknown]
  - Weight increased [Unknown]
  - Genotype drug resistance test positive [Not Recovered/Not Resolved]
  - Asthenia [Unknown]
  - Hepatocellular carcinoma [Recovered/Resolved]
  - Balance disorder [Unknown]
